FAERS Safety Report 21028524 (Version 1)
Quarter: 2022Q2

REPORT INFORMATION
  Report Type: Spontaneous
  Country: US (occurrence: None)
  Receive Date: 20220630
  Receipt Date: 20220630
  Transmission Date: 20220721
  Serious: No
  Sender: FDA-Public Use
  Company Number: None

PATIENT
  Age: 81 Year
  Sex: Female
  Weight: 52.16 kg

DRUGS (1)
  1. XIIDRA [Suspect]
     Active Substance: LIFITEGRAST
     Indication: Eye irritation
     Dosage: FREQUENCY : TWICE A DAY;?OTHER ROUTE : EYE DROP ;?
     Route: 050
     Dates: start: 20220323, end: 20220323

REACTIONS (4)
  - Wheezing [None]
  - Dyspnoea [None]
  - Instillation site pain [None]
  - Instillation site pain [None]

NARRATIVE: CASE EVENT DATE: 20220323
